FAERS Safety Report 8692305 (Version 2)
Quarter: 2012Q4

REPORT INFORMATION
  Report Type: 
  Country: US (occurrence: US)
  Receive Date: 20120730
  Receipt Date: 20120831
  Transmission Date: 20130627
  Serious: Yes (Other)
  Sender: FDA-Public Use
  Company Number: PHEH2012US014661

PATIENT
  Age: 56 Year
  Sex: Female

DRUGS (5)
  1. GILENYA [Suspect]
     Indication: MULTIPLE SCLEROSIS
     Dosage: UNK
     Route: 048
     Dates: end: 20120709
  2. OXYBUTYNIN [Concomitant]
     Dosage: UNK
     Route: 048
     Dates: start: 20060106
  3. CLONAZEPAM [Concomitant]
     Dosage: UNK
     Route: 048
     Dates: start: 20080706
  4. ASPIRIN [Concomitant]
     Dosage: UNK
     Route: 048
     Dates: start: 20111030
  5. FISH OIL [Concomitant]
     Indication: BLOOD CHOLESTEROL INCREASED
     Dosage: UNK
     Route: 048
     Dates: start: 20120227

REACTIONS (5)
  - Abscess jaw [Unknown]
  - Infection [Unknown]
  - Impaired healing [Unknown]
  - Blister [Recovering/Resolving]
  - White blood cell count decreased [Unknown]
